FAERS Safety Report 15762594 (Version 2)
Quarter: 2019Q1

REPORT INFORMATION
  Report Type: Report from Study
  Country: PL (occurrence: PL)
  Receive Date: 20181226
  Receipt Date: 20190115
  Transmission Date: 20190417
  Serious: Yes (Death, Hospitalization, Other)
  Sender: FDA-Public Use
  Company Number: PL-BAYER-2018-240289

PATIENT

DRUGS (1)
  1. BETASERON [Suspect]
     Active Substance: INTERFERON BETA-1B
     Indication: MULTIPLE SCLEROSIS
     Dosage: 1 DF, QOD
     Route: 064

REACTIONS (3)
  - Foetal death [Fatal]
  - Foetal exposure timing unspecified [None]
  - Foetal cardiac disorder [Unknown]

NARRATIVE: CASE EVENT DATE: 20190104
